FAERS Safety Report 4636660-X (Version None)
Quarter: 2005Q2

REPORT INFORMATION
  Report Type: 
  Country: None (occurrence: None)
  Receive Date: 20050328
  Receipt Date: 20041207
  Transmission Date: 20051028
  Serious: No
  Sender: FDA-Public Use
  Company Number: USA041285526

PATIENT
  Sex: Male

DRUGS (1)
  1. STRATTERA [Suspect]
     Indication: ATTENTION DEFICIT/HYPERACTIVITY DISORDER
     Dosage: 40 MG DAY
     Dates: start: 20041206

REACTIONS (5)
  - FEELING ABNORMAL [None]
  - FLATULENCE [None]
  - HEART RATE INCREASED [None]
  - LIBIDO INCREASED [None]
  - RESPIRATORY SIGHS [None]
